FAERS Safety Report 5945585-9 (Version None)
Quarter: 2008Q4

REPORT INFORMATION
  Report Type: 
  Country: None (occurrence: None)
  Receive Date: 20081107
  Receipt Date: 20081027
  Transmission Date: 20090506
  Serious: Yes (Death, Life-Threatening, Hospitalization)
  Sender: FDA-Public Use
  Company Number: BR-PFIZER INC-2008091239

PATIENT
  Age: 20 Year
  Sex: Male

DRUGS (2)
  1. PHENYTOIN [Suspect]
     Indication: BRAIN INJURY
  2. DIPYRONE TAB [Suspect]

REACTIONS (8)
  - ACUTE RESPIRATORY DISTRESS SYNDROME [None]
  - COAGULOPATHY [None]
  - MALAISE [None]
  - MULTI-ORGAN FAILURE [None]
  - PYREXIA [None]
  - RENAL IMPAIRMENT [None]
  - SKIN INFECTION [None]
  - TOXIC EPIDERMAL NECROLYSIS [None]
